FAERS Safety Report 15989748 (Version 1)
Quarter: 2019Q1

REPORT INFORMATION
  Report Type: Report from Study
  Country: MX (occurrence: MX)
  Receive Date: 20190221
  Receipt Date: 20190221
  Transmission Date: 20190418
  Serious: Yes (Other)
  Sender: FDA-Public Use
  Company Number: PHHY2019MX039452

PATIENT
  Age: 75 Year
  Sex: Female
  Weight: 75 kg

DRUGS (6)
  1. RIOPAN [Concomitant]
     Indication: DYSPEPSIA
     Dosage: 1 ML, TID
     Route: 048
     Dates: start: 20190212
  2. DAGLA [Concomitant]
     Indication: PRODUCT USED FOR UNKNOWN INDICATION
     Dosage: 1 DF (50 MG), TID
     Route: 048
     Dates: start: 20190212
  3. DEXIVANT [Concomitant]
     Indication: PRODUCT USED FOR UNKNOWN INDICATION
     Dosage: 1 DF, QD
     Route: 048
     Dates: start: 20190212
  4. ASPIRIN. [Concomitant]
     Active Substance: ASPIRIN
     Indication: PRODUCT USED FOR UNKNOWN INDICATION
     Dosage: 1 DF, QD
     Route: 048
     Dates: start: 2014, end: 20190211
  5. EXFORGE [Suspect]
     Active Substance: AMLODIPINE BESYLATE\VALSARTAN
     Indication: HYPERTENSION
     Dosage: 1 DF, QD (AMLODIPINE 5 MG, VALSARTAN 160 MG)
     Route: 048
     Dates: start: 20190125
  6. UNIVAL [Concomitant]
     Indication: PROPHYLAXIS
     Dosage: 10 ML, TID
     Route: 048
     Dates: start: 20190205

REACTIONS (10)
  - Decreased appetite [Unknown]
  - Gastric disorder [Unknown]
  - Duodenogastric reflux [Unknown]
  - Nervousness [Unknown]
  - Oesophagitis [Unknown]
  - Depression [Unknown]
  - Chondropathy [Unknown]
  - Pain [Unknown]
  - Budd-Chiari syndrome [Unknown]
  - Dyspnoea [Unknown]

NARRATIVE: CASE EVENT DATE: 20190125
